FAERS Safety Report 5151632-7 (Version None)
Quarter: 2006Q4

REPORT INFORMATION
  Report Type: 
  Country: None (occurrence: None)
  Receive Date: 20061115
  Receipt Date: 20060714
  Transmission Date: 20070319
  Serious: No
  Sender: FDA-Public Use
  Company Number: US-BRISTOL-MYERS SQUIBB COMPANY-13443122

PATIENT
  Sex: Male
  Weight: 82 kg

DRUGS (9)
  1. SUSTIVA [Suspect]
     Indication: ACQUIRED IMMUNODEFICIENCY SYNDROME
  2. ATIVAN [Concomitant]
  3. SLEEP AID [Concomitant]
  4. ZERIT [Concomitant]
  5. VIDEX [Concomitant]
  6. RISPERDAL [Concomitant]
  7. NAPROXEN [Concomitant]
  8. HYPERTENSION MEDICATION [Concomitant]
  9. ANAFRANIL [Concomitant]

REACTIONS (2)
  - AGGRESSION [None]
  - INSOMNIA [None]
